FAERS Safety Report 13093230 (Version 1)
Quarter: 2017Q1

REPORT INFORMATION
  Report Type: Spontaneous
  Country: US (occurrence: US)
  Receive Date: 20170106
  Receipt Date: 20170106
  Transmission Date: 20170428
  Serious: Yes (Other)
  Sender: FDA-Public Use
  Company Number: None

PATIENT
  Age: 80 Year
  Sex: Female
  Weight: 61.24 kg

DRUGS (4)
  1. AMMONIUM LACTATE PERRIGO [Suspect]
     Active Substance: AMMONIUM LACTATE
     Indication: RASH
     Route: 061
  2. AMMONIUM LACTATE PERRIGO [Suspect]
     Active Substance: AMMONIUM LACTATE
     Indication: SKIN DISCOLOURATION
     Route: 061
  3. METOPROLOL. [Concomitant]
     Active Substance: METOPROLOL
  4. VITAMIN D [Concomitant]
     Active Substance: CHOLECALCIFEROL

REACTIONS (5)
  - Application site erythema [None]
  - Skin discolouration [None]
  - Skin wrinkling [None]
  - Peripheral swelling [None]
  - Skin disorder [None]
